FAERS Safety Report 6180165-4 (Version None)
Quarter: 2009Q2

REPORT INFORMATION
  Report Type: 
  Country: None (occurrence: None)
  Receive Date: 20090505
  Receipt Date: 20090424
  Transmission Date: 20091009
  Serious: Yes (Hospitalization)
  Sender: FDA-Public Use
  Company Number: PL-AMGEN-UK344189

PATIENT
  Sex: Female

DRUGS (4)
  1. ROMIPLOSTIM [Suspect]
     Indication: IDIOPATHIC THROMBOCYTOPENIC PURPURA
     Route: 058
     Dates: start: 20090325
  2. METYPRED [Concomitant]
     Dates: start: 20090418
  3. SANDOGLOBULIN [Concomitant]
     Route: 042
     Dates: start: 20090415
  4. GLUCOCORTICOSTEROIDS [Concomitant]

REACTIONS (4)
  - CONTUSION [None]
  - MOUTH HAEMORRHAGE [None]
  - UROGENITAL HAEMORRHAGE [None]
  - VENOUS THROMBOSIS [None]
